FAERS Safety Report 15751044 (Version 1)
Quarter: 2018Q4

REPORT INFORMATION
  Report Type: Spontaneous
  Country: US (occurrence: US)
  Receive Date: 20181221
  Receipt Date: 20181221
  Transmission Date: 20190205
  Serious: No
  Sender: FDA-Public Use
  Company Number: US-THERAPEUTICSMD-2018TMD00327

PATIENT
  Age: 54 Year
  Sex: Female
  Weight: 72.56 kg

DRUGS (1)
  1. IMVEXXY [Suspect]
     Active Substance: ESTRADIOL
     Indication: ATROPHIC VULVOVAGINITIS
     Dosage: 10 ?G, 3X/WEEK; AT BEDTIME
     Route: 067
     Dates: start: 20181030, end: 20181030

REACTIONS (3)
  - Muscle spasms [Recovered/Resolved]
  - Uterine spasm [Recovered/Resolved]
  - Off label use [Recovered/Resolved]

NARRATIVE: CASE EVENT DATE: 20181030
